FAERS Safety Report 8585464-4 (Version None)
Quarter: 2012Q3

REPORT INFORMATION
  Report Type: 
  Country: None (occurrence: None)
  Receive Date: 20120810
  Receipt Date: 20110822
  Transmission Date: 20120928
  Serious: No
  Sender: FDA-Public Use
  Company Number: US-GLAXOSMITHKLINE-A0941858A

PATIENT
  Age: 71 Year
  Sex: Female

DRUGS (3)
  1. SINEMET [Concomitant]
  2. MULTI-VITAMINS [Concomitant]
  3. REQUIP XL [Suspect]
     Indication: PARKINSON'S DISEASE
     Dosage: 18MG IN THE MORNING
     Route: 048
     Dates: start: 20000101

REACTIONS (2)
  - MEDICATION RESIDUE [None]
  - DRUG EFFECT DECREASED [None]
